FAERS Safety Report 7482025-5 (Version None)
Quarter: 2011Q2

REPORT INFORMATION
  Report Type: 
  Country: None (occurrence: None)
  Receive Date: 20110516
  Receipt Date: 20110502
  Transmission Date: 20111010
  Serious: Yes (Hospitalization, Disabling)
  Sender: FDA-Public Use
  Company Number: CA-JNJFOC-20110312534

PATIENT
  Sex: Male
  Weight: 76 kg

DRUGS (2)
  1. REMICADE [Suspect]
     Indication: CROHN'S DISEASE
     Route: 042
     Dates: start: 20100301, end: 20110201
  2. METHOTREXATE [Concomitant]
     Indication: CROHN'S DISEASE
     Route: 058

REACTIONS (2)
  - CEREBROVASCULAR ACCIDENT [None]
  - NEUROSYPHILIS [None]
